FAERS Safety Report 10435073 (Version 2)
Quarter: 2014Q4

REPORT INFORMATION
  Report Type: Spontaneous
  Country: US (occurrence: None)
  Receive Date: 20140815
  Receipt Date: 20141208
  Transmission Date: 20150528
  Serious: No
  Sender: FDA-Public Use
  Company Number: 2014TUS005349

PATIENT
  Age: 51 Year
  Sex: Female
  Weight: 110 kg

DRUGS (9)
  1. XYREM (OXBATE SODIUM) [Concomitant]
  2. ADDERALL (AMFETAMINE ASPARTATE, AMFETAMINE SULFATE, DEXAMFETAMINE SCACCARATE, DEXAMFETAMINE SULFATE) [Concomitant]
  3. CYTOMEL (LIOTHYRONINE SODIUM) [Concomitant]
  4. PROGESTERONE MICRONIZED (PROGESTERONE) [Concomitant]
  5. LUNESTA [Concomitant]
     Active Substance: ESZOPICLONE
  6. LAMOTRIGINE (LAMOTRIGIINE) [Concomitant]
  7. LYRICA [Concomitant]
     Active Substance: PREGABALIN
  8. BRINTELLIX [Suspect]
     Active Substance: VORTIOXETINE HYDROBROMIDE
     Indication: MAJOR DEPRESSION
     Route: 048
     Dates: start: 20140603, end: 20140623
  9. PREMARIN (ESTROGENS CONJUGATED) [Concomitant]

REACTIONS (4)
  - Memory impairment [None]
  - Nausea [None]
  - Balance disorder [None]
  - Clumsiness [None]

NARRATIVE: CASE EVENT DATE: 20140603
